FAERS Safety Report 4525352-3 (Version None)
Quarter: 2004Q4

REPORT INFORMATION
  Report Type: 
  Country: None (occurrence: None)
  Receive Date: 20041213
  Receipt Date: 20041207
  Transmission Date: 20050328
  Serious: Yes (Other)
  Sender: FDA-Public Use
  Company Number: SE-MERCK-0412SWE00012

PATIENT
  Age: 86 Year
  Sex: Female

DRUGS (2)
  1. VIOXX [Suspect]
     Indication: ARTHRITIS
     Route: 048
     Dates: start: 20031209, end: 20031219
  2. KETOPROFEN [Concomitant]
     Route: 065

REACTIONS (2)
  - HEMIPLEGIA [None]
  - THROMBOSIS [None]
